FAERS Safety Report 7281532-8 (Version None)
Quarter: 2011Q1

REPORT INFORMATION
  Report Type: 
  Country: None (occurrence: None)
  Receive Date: 20110208
  Receipt Date: 20110128
  Transmission Date: 20110831
  Serious: Yes (Hospitalization)
  Sender: FDA-Public Use
  Company Number: FR-PFIZER INC-2011020294

PATIENT
  Age: 77 Year
  Sex: Male

DRUGS (8)
  1. SPIRIVA [Suspect]
     Indication: CHRONIC OBSTRUCTIVE PULMONARY DISEASE
     Dosage: UNK
     Route: 055
  2. DIGOXIN [Suspect]
     Indication: CARDIAC FAILURE
     Dosage: UNK
  3. CARDENSIEL [Suspect]
     Indication: CARDIAC FAILURE
     Dosage: 3.75 MG, 1X/DAY
     Route: 048
  4. RAMIPRIL [Suspect]
     Dosage: 5 MG, 1X/DAY
     Route: 048
  5. LASIX [Suspect]
     Dosage: 40 MG, 1X/DAY
     Route: 048
  6. PREVISCAN [Suspect]
     Indication: ATRIAL FIBRILLATION
     Dosage: UNK
     Route: 048
  7. DOXAZOSIN MESYLATE [Suspect]
     Indication: HYPERTENSION
     Dosage: 4 MG, 1X/DAY
     Route: 048
  8. EUPANTOL [Suspect]
     Dosage: 40 MG, 1X/DAY
     Route: 048

REACTIONS (5)
  - PROTHROMBIN TIME RATIO DECREASED [None]
  - NORMOCHROMIC NORMOCYTIC ANAEMIA [None]
  - C-REACTIVE PROTEIN INCREASED [None]
  - PSEUDOPOLYP [None]
  - INTERNATIONAL NORMALISED RATIO INCREASED [None]
